FAERS Safety Report 10786587 (Version 1)
Quarter: 2015Q1

REPORT INFORMATION
  Report Type: Spontaneous
  Country: FR (occurrence: FR)
  Receive Date: 20150211
  Receipt Date: 20150211
  Transmission Date: 20150721
  Serious: Yes (Hospitalization)
  Sender: FDA-Public Use
  Company Number: FR-ELI_LILLY_AND_COMPANY-FR201502001702

PATIENT
  Age: 63 Year
  Sex: Male

DRUGS (2)
  1. ASPIRINE [Concomitant]
     Active Substance: ASPIRIN
  2. EFIENT [Suspect]
     Active Substance: PRASUGREL HYDROCHLORIDE
     Indication: MYOCARDIAL INFARCTION
     Route: 065

REACTIONS (1)
  - Ischaemic stroke [Unknown]
